FAERS Safety Report 6144123-8 (Version None)
Quarter: 2009Q2

REPORT INFORMATION
  Report Type: 
  Country: None (occurrence: None)
  Receive Date: 20090406
  Receipt Date: 20090326
  Transmission Date: 20091009
  Serious: Yes (Hospitalization)
  Sender: FDA-Public Use
  Company Number: US-BIOGENIDEC-2008BI029636

PATIENT
  Age: 59 Year
  Sex: Female

DRUGS (1)
  1. AVONEX [Suspect]
     Indication: MULTIPLE SCLEROSIS
     Route: 030
     Dates: start: 19970701

REACTIONS (5)
  - ARTERIOSCLEROSIS [None]
  - HYPERTENSION [None]
  - NEPHROLITHIASIS [None]
  - PERIPHERAL VASCULAR DISORDER [None]
  - VOCAL CORD POLYP [None]
